FAERS Safety Report 5683203-8 (Version None)
Quarter: 2008Q1

REPORT INFORMATION
  Report Type: 
  Country: None (occurrence: None)
  Receive Date: 20080327
  Receipt Date: 20080304
  Transmission Date: 20080703
  Serious: No
  Sender: FDA-Public Use
  Company Number: US-BOEHRINGER INGELHEIM GMBH, GERMANY-2008-BP-03393BP

PATIENT

DRUGS (1)
  1. AGGRENOX [Suspect]

REACTIONS (2)
  - NAUSEA [None]
  - VOMITING [None]
